FAERS Safety Report 7642957-1 (Version None)
Quarter: 2011Q3

REPORT INFORMATION
  Report Type: 
  Country: None (occurrence: None)
  Receive Date: 20110728
  Receipt Date: 20081017
  Transmission Date: 20111222
  Serious: Yes (Other)
  Sender: FDA-Public Use
  Company Number: US-BAYER-200837193NA

PATIENT
  Age: 48 Year
  Sex: Female
  Weight: 81.633 kg

DRUGS (20)
  1. OMNISCAN [Suspect]
     Indication: NUCLEAR MAGNETIC RESONANCE IMAGING
  2. MULTIHANCE [Suspect]
     Indication: NUCLEAR MAGNETIC RESONANCE IMAGING
  3. NIFEDIPINE [Concomitant]
  4. SULAR [Concomitant]
     Dosage: 10MG DAILY
  5. MAGNEVIST [Suspect]
     Dosage: 30 ML, UNK
     Route: 042
     Dates: start: 20050810, end: 20050810
  6. MAGNEVIST [Suspect]
     Dosage: 20 ML, UNK
     Dates: start: 20060626, end: 20060626
  7. EPOGEN [Concomitant]
     Indication: DIALYSIS
     Dosage: 8500 UNITS AT DIALYSIS EVERY M-W-F
  8. METOPROLOL TARTRATE [Concomitant]
     Dosage: 100 MG TWICE A DAY
  9. NORVASC [Concomitant]
  10. MAGNEVIST [Suspect]
     Indication: ANGIOGRAM
     Dosage: UNK
     Route: 042
     Dates: start: 20050511, end: 20050511
  11. OPTIMARK [Suspect]
     Indication: NUCLEAR MAGNETIC RESONANCE IMAGING
  12. DIOVAN [Concomitant]
     Indication: HYPERTENSION
     Dosage: 30 MG TWICE DAILY
  13. AVAPRO [Concomitant]
  14. PHOSLO [Concomitant]
  15. PROHANCE [Suspect]
     Indication: NUCLEAR MAGNETIC RESONANCE IMAGING
  16. CLONIDINE [Concomitant]
     Indication: HYPERTENSION
     Dosage: 10 MG DAILY
  17. COREG [Concomitant]
     Dosage: 25 MG DAILY
  18. RENAGEL [Concomitant]
     Dosage: 800 MG DAILY
  19. MAGNEVIST [Suspect]
     Indication: NUCLEAR MAGNETIC RESONANCE IMAGING
     Dosage: UNK UNK, ONCE
     Route: 042
     Dates: start: 20050511
  20. FOSRENOL [Concomitant]

REACTIONS (21)
  - GAIT DISTURBANCE [None]
  - QUALITY OF LIFE DECREASED [None]
  - SKIN DISORDER [None]
  - ANHEDONIA [None]
  - SKIN INDURATION [None]
  - SKIN HYPERTROPHY [None]
  - SKIN TIGHTNESS [None]
  - SCAR [None]
  - DEPRESSED MOOD [None]
  - DEPRESSION [None]
  - NEPHROGENIC SYSTEMIC FIBROSIS [None]
  - SKIN DISCOLOURATION [None]
  - PAIN IN EXTREMITY [None]
  - OEDEMA PERIPHERAL [None]
  - MUSCULAR WEAKNESS [None]
  - EMOTIONAL DISTRESS [None]
  - GENERAL PHYSICAL HEALTH DETERIORATION [None]
  - INJURY [None]
  - PAIN [None]
  - ANXIETY [None]
  - STRESS [None]
